FAERS Safety Report 8042663-8 (Version None)
Quarter: 2012Q1

REPORT INFORMATION
  Report Type: 
  Country: None (occurrence: None)
  Receive Date: 20120112
  Receipt Date: 20120110
  Transmission Date: 20120608
  Serious: Yes (Hospitalization)
  Sender: FDA-Public Use
  Company Number: NL-MERCK-1201NLD00008

PATIENT
  Age: 46 Year
  Sex: Male

DRUGS (1)
  1. PROSCAR [Suspect]
     Route: 048
     Dates: start: 19970101

REACTIONS (2)
  - RETINAL DETACHMENT [None]
  - CATARACT [None]
